FAERS Safety Report 5598396-0 (Version None)
Quarter: 2008Q1

REPORT INFORMATION
  Report Type: 
  Country: None (occurrence: None)
  Receive Date: 20080122
  Receipt Date: 20080117
  Transmission Date: 20080703
  Serious: Yes (Hospitalization)
  Sender: FDA-Public Use
  Company Number: A0690442A

PATIENT
  Age: 37 Year
  Sex: Female
  Weight: 95.5 kg

DRUGS (1)
  1. ALLI [Suspect]
     Indication: WEIGHT LOSS DIET
     Dates: start: 20070730, end: 20071024

REACTIONS (12)
  - DEHYDRATION [None]
  - DIZZINESS [None]
  - EAR PAIN [None]
  - FEELING ABNORMAL [None]
  - HEPATIC ENZYME INCREASED [None]
  - HEPATITIS [None]
  - HYPOTENSION [None]
  - LOSS OF CONSCIOUSNESS [None]
  - ORTHOSTATIC HYPOTENSION [None]
  - PAIN IN JAW [None]
  - SYNCOPE [None]
  - VOMITING [None]
